FAERS Safety Report 4283859-0 (Version None)
Quarter: 2004Q1

REPORT INFORMATION
  Report Type: 
  Country: None (occurrence: None)
  Receive Date: 20040115
  Receipt Date: 20030605
  Transmission Date: 20041129
  Serious: Yes (Hospitalization)
  Sender: FDA-Public Use
  Company Number: US-JNJFOC-20030600074

PATIENT
  Age: 58 Year
  Sex: Female
  Weight: 77.4744 kg

DRUGS (11)
  1. DOXIL [Suspect]
     Indication: OVARIAN CANCER
     Dosage: 40 MG/M2, INTRAVENOUS
     Route: 042
     Dates: end: 20030501
  2. CISPLATIN [Concomitant]
  3. DARBOEPOETIN ALFA (DARBEPOETIN ALFA) [Concomitant]
  4. MANITOL (MANNITOL) [Concomitant]
  5. MAGNESIUM (MAGNESIUM) [Concomitant]
  6. DEXAMETHASONE [Concomitant]
  7. GRANISETRON (GRANISETRON) [Concomitant]
  8. BENADRYL [Concomitant]
  9. EFFEXOR [Concomitant]
  10. PEGFILGRASTIM (FILGRASTIM) [Concomitant]
  11. MORPHINE [Concomitant]

REACTIONS (2)
  - ERYTHEMA [None]
  - RASH [None]
